FAERS Safety Report 8170358-9 (Version None)
Quarter: 2012Q1

REPORT INFORMATION
  Report Type: 
  Country: None (occurrence: None)
  Receive Date: 20120228
  Receipt Date: 20120223
  Transmission Date: 20120608
  Serious: Yes (Other)
  Sender: FDA-Public Use
  Company Number: JP-B.I. PHARMACEUTICALS,INC./RIDGEFIELD-2012-BP-03501NB

PATIENT
  Age: 82 Year
  Sex: Male

DRUGS (4)
  1. HIRUDOID [Suspect]
     Route: 061
  2. PRADAXA [Suspect]
     Indication: CEREBROVASCULAR ACCIDENT PROPHYLAXIS
     Dosage: 220 MG
     Route: 048
  3. FAMOTIDINE [Suspect]
     Indication: HAEMORRHAGE PROPHYLAXIS
     Route: 048
  4. LOSARTAN POTASSIUM [Suspect]
     Indication: HYPERTENSION
     Dosage: 25 MG
     Route: 048

REACTIONS (4)
  - VASCULAR INSUFFICIENCY [None]
  - NECROSIS [None]
  - THERMAL BURN [None]
  - HAEMORRHAGIC DIATHESIS [None]
